FAERS Safety Report 8547688-1 (Version None)
Quarter: 2012Q3

REPORT INFORMATION
  Report Type: 
  Country: None (occurrence: None)
  Receive Date: 20120727
  Receipt Date: 20120423
  Transmission Date: 20120928
  Serious: No
  Sender: FDA-Public Use
  Company Number: US-ASTRAZENECA-2012SE26724

PATIENT
  Age: 46 Year
  Sex: Female
  Weight: 54.4 kg

DRUGS (3)
  1. LOVAZA [Concomitant]
     Indication: BLOOD CHOLESTEROL ABNORMAL
  2. SEROQUEL XR [Suspect]
     Indication: INSOMNIA
     Route: 048
  3. SEROQUEL XR [Suspect]
     Indication: MOOD ALTERED
     Route: 048

REACTIONS (6)
  - DIZZINESS [None]
  - WEIGHT INCREASED [None]
  - DRY MOUTH [None]
  - CONSTIPATION [None]
  - BLOOD CHOLESTEROL INCREASED [None]
  - THIRST [None]
